FAERS Safety Report 21291060 (Version 1)
Quarter: 2022Q3

REPORT INFORMATION
  Report Type: Spontaneous
  Country: US (occurrence: US)
  Receive Date: 20220903
  Receipt Date: 20220903
  Transmission Date: 20221027
  Serious: No
  Sender: FDA-Public Use
  Company Number: US-AMGEN-USASP2022148245

PATIENT
  Age: 59 Year

DRUGS (4)
  1. PROLIA [Suspect]
     Active Substance: DENOSUMAB
     Indication: Osteoporosis
     Dosage: UNK UNK, Q6MO
     Route: 065
  2. GRAPESEED [Concomitant]
     Indication: Product used for unknown indication
     Route: 065
  3. TEA [Concomitant]
     Active Substance: TEA LEAF
     Route: 065
  4. CITRUS BERGAMIA [Concomitant]

REACTIONS (5)
  - SARS-CoV-2 test positive [Unknown]
  - Blood cholesterol increased [Unknown]
  - Dry skin [Unknown]
  - Bone loss [Unknown]
  - Product dose omission issue [Unknown]

NARRATIVE: CASE EVENT DATE: 20220819
